FAERS Safety Report 6720361-8 (Version None)
Quarter: 2010Q2

REPORT INFORMATION
  Report Type: 
  Country: None (occurrence: None)
  Receive Date: 20100511
  Receipt Date: 20100505
  Transmission Date: 20101027
  Serious: Yes (Other)
  Sender: FDA-Public Use
  Company Number: US-PFIZER INC-2010057410

PATIENT
  Sex: Female

DRUGS (1)
  1. DETROL [Suspect]
     Indication: URINARY INCONTINENCE
     Dosage: UNK

REACTIONS (4)
  - DIABETES MELLITUS [None]
  - DRUG INEFFECTIVE [None]
  - DYSSTASIA [None]
  - OSTEOPOROSIS [None]
